FAERS Safety Report 14311904 (Version 2)
Quarter: 2017Q4

REPORT INFORMATION
  Report Type: Spontaneous
  Country: GR (occurrence: GR)
  Receive Date: 20171221
  Receipt Date: 20171228
  Transmission Date: 20180321
  Serious: Yes (Other)
  Sender: FDA-Public Use
  Company Number: GR-ROCHE-2043020

PATIENT
  Sex: Female

DRUGS (1)
  1. XOLAIR [Suspect]
     Active Substance: OMALIZUMAB
     Indication: CHRONIC SPONTANEOUS URTICARIA
     Route: 065

REACTIONS (9)
  - Rash pustular [Unknown]
  - Oedema [Unknown]
  - Pruritus [Unknown]
  - Exfoliative rash [Unknown]
  - Erythema [Unknown]
  - Skin lesion [Unknown]
  - Pigmentation disorder [Unknown]
  - Blister [Unknown]
  - Pharyngitis [Unknown]
